FAERS Safety Report 20562569 (Version 1)
Quarter: 2022Q1

REPORT INFORMATION
  Report Type: Spontaneous
  Country: US (occurrence: None)
  Receive Date: 20220307
  Receipt Date: 20220307
  Transmission Date: 20220423
  Serious: Yes (Other)
  Sender: FDA-Public Use
  Company Number: None

PATIENT
  Age: 57 Year
  Sex: Male
  Weight: 83.25 kg

DRUGS (4)
  1. TOCILIZUMAB [Suspect]
     Active Substance: TOCILIZUMAB
     Indication: COVID-19
     Dosage: OTHER FREQUENCY : ONCE;?
     Route: 042
     Dates: start: 20210630, end: 20210630
  2. BENADRYL [Concomitant]
     Active Substance: DIPHENHYDRAMINE HYDROCHLORIDE
     Dates: start: 20210630, end: 20210630
  3. Famotadine [Concomitant]
     Dates: start: 20210630, end: 20210630
  4. DEXAMETHASONE [Concomitant]
     Active Substance: DEXAMETHASONE
     Dates: start: 20210629, end: 20210709

REACTIONS (9)
  - Infusion related reaction [None]
  - Malaise [None]
  - Dizziness [None]
  - Pallor [None]
  - Flushing [None]
  - Oxygen saturation decreased [None]
  - Drug hypersensitivity [None]
  - Lethargy [None]
  - Somnolence [None]

NARRATIVE: CASE EVENT DATE: 20210630
